FAERS Safety Report 7741783-2 (Version None)
Quarter: 2011Q3

REPORT INFORMATION
  Report Type: 
  Country: None (occurrence: None)
  Receive Date: 20110912
  Receipt Date: 20110902
  Transmission Date: 20111222
  Serious: Yes (Hospitalization)
  Sender: FDA-Public Use
  Company Number: US-BIOGENIDEC-2011BI026669

PATIENT
  Age: 47 Year
  Sex: Male

DRUGS (1)
  1. AVONEX [Suspect]
     Indication: MULTIPLE SCLEROSIS
     Route: 030
     Dates: start: 20090503

REACTIONS (5)
  - INFLUENZA LIKE ILLNESS [None]
  - VIRAL INFECTION [None]
  - DRUG DOSE OMISSION [None]
  - HYPOAESTHESIA [None]
  - UHTHOFF'S PHENOMENON [None]
